FAERS Safety Report 8184538-X (Version None)
Quarter: 2012Q1

REPORT INFORMATION
  Report Type: 
  Country: None (occurrence: None)
  Receive Date: 20120305
  Receipt Date: 20120227
  Transmission Date: 20120608
  Serious: Yes (Other)
  Sender: FDA-Public Use
  Company Number: US-MERCK-1202USA04352B1

PATIENT
  Sex: Male
  Weight: 5 kg

DRUGS (3)
  1. ISENTRESS [Suspect]
     Route: 064
     Dates: start: 20110921
  2. RETROVIR [Suspect]
     Route: 064
     Dates: start: 20111125, end: 20111126
  3. COMBIVIR [Suspect]
     Route: 064
     Dates: start: 20110921

REACTIONS (5)
  - FOETAL EXPOSURE DURING PREGNANCY [None]
  - LARGE FOR DATES BABY [None]
  - DYSKINESIA [None]
  - RESPIRATORY DEPRESSION [None]
  - BIRTH TRAUMA [None]
